FAERS Safety Report 8718149 (Version 4)
Quarter: 2012Q4

REPORT INFORMATION
  Report Type: 
  Country: DE (occurrence: DE)
  Receive Date: 20120810
  Receipt Date: 20120829
  Transmission Date: 20130627
  Serious: Yes (Other)
  Sender: FDA-Public Use
  Company Number: DE-UCBSA-057815

PATIENT
  Age: 48 Year
  Sex: Female
  Weight: 63 kg

DRUGS (3)
  1. VIMPAT [Suspect]
     Indication: EPILEPSY
     Dosage: STRENGTH: 200 MG
     Dates: start: 2010
  2. NEURONTIN [Concomitant]
     Dosage: DOSE STRENGTH:800 MG  3X0.5 TABLETS+1.5 TABLETS ( DAILY DOSE: 3 TABLETS)
  3. ZONEGRAN [Concomitant]
     Dosage: DOSE STRENGTH:100 MG 1X2 CAPSULES+1X3 CAPSULES (DAILY DOSE: 5 CAPSULES)

REACTIONS (15)
  - Grand mal convulsion [Unknown]
  - Dyspnoea [Unknown]
  - Injury [Unknown]
  - Contusion [Unknown]
  - Adverse event [Unknown]
  - Pain in extremity [Recovering/Resolving]
  - Headache [Unknown]
  - Aura [Unknown]
  - Frequent bowel movements [Unknown]
  - Memory impairment [Unknown]
  - Mental impairment [Unknown]
  - Fatigue [Unknown]
  - Dry mouth [Unknown]
  - Irritability [Unknown]
  - Dysarthria [Unknown]
